FAERS Safety Report 7130628-X (Version None)
Quarter: 2010Q4

REPORT INFORMATION
  Report Type: 
  Country: None (occurrence: None)
  Receive Date: 20101029
  Receipt Date: 20100511
  Transmission Date: 20110411
  Serious: No
  Sender: FDA-Public Use
  Company Number: US-002272

PATIENT
  Sex: Male
  Weight: 79.3795 kg

DRUGS (2)
  1. FIRMAGON [Suspect]
     Indication: PROSTATE CANCER
     Dosage: (240 MG QD SUBCUTANEOUS), (80 MG 1X/MONTH SUBCUTANEOUS),
     Route: 058
     Dates: start: 20100420, end: 20100420
  2. FIRMAGON [Suspect]
     Indication: PROSTATE CANCER
     Dosage: (240 MG QD SUBCUTANEOUS), (80 MG 1X/MONTH SUBCUTANEOUS),
     Route: 058
     Dates: start: 20100420

REACTIONS (1)
  - INJECTION SITE CELLULITIS [None]
